FAERS Safety Report 6035008-6 (Version None)
Quarter: 2009Q1

REPORT INFORMATION
  Report Type: 
  Country: None (occurrence: None)
  Receive Date: 20090109
  Receipt Date: 20081231
  Transmission Date: 20090719
  Serious: Yes (Death)
  Sender: FDA-Public Use
  Company Number: 2008SP024840

PATIENT
  Age: 48 Year
  Sex: Male

DRUGS (2)
  1. INTRON A [Suspect]
     Indication: MALIGNANT MELANOMA
     Dosage: 15 MIU;TIW;IV
     Route: 042
  2. TEMODAL [Concomitant]

REACTIONS (2)
  - DISEASE PROGRESSION [None]
  - METASTATIC MALIGNANT MELANOMA [None]
